FAERS Safety Report 23523799 (Version 1)
Quarter: 2024Q1

REPORT INFORMATION
  Report Type: Spontaneous
  Country: CA (occurrence: CA)
  Receive Date: 20240214
  Receipt Date: 20240214
  Transmission Date: 20240410
  Serious: Yes (Other)
  Sender: FDA-Public Use
  Company Number: CA-PFIZER INC-202300076064

PATIENT
  Age: 27 Year
  Sex: Female

DRUGS (2)
  1. ABRILADA [Suspect]
     Active Substance: ADALIMUMAB-AFZB
     Indication: Hidradenitis
     Dosage: 40 MG, INDUCTION 160MG WEEK 0, 80MG WEEK 2 THEN MAINTENANCE 40MG EVERY OTHER WEEK, STARTING WEEK 4
     Route: 058
     Dates: start: 20230302
  2. ABRILADA [Suspect]
     Active Substance: ADALIMUMAB-AFZB
     Dosage: 40 MG, INDUCTION 160MG WEEK 0, 80MG WEEK 2 THEN MAINTENANCE 40MG STARTING WEEK 4 (ONE PEN WEEKLY)
     Route: 058
     Dates: start: 20230302

REACTIONS (12)
  - Immunodeficiency [Unknown]
  - Fatigue [Not Recovered/Not Resolved]
  - Pain [Unknown]
  - Polymenorrhoea [Not Recovered/Not Resolved]
  - Vaginal haemorrhage [Not Recovered/Not Resolved]
  - Gastrointestinal disorder [Unknown]
  - Abdominal pain [Not Recovered/Not Resolved]
  - Intermenstrual bleeding [Not Recovered/Not Resolved]
  - Nasopharyngitis [Recovering/Resolving]
  - Fungal infection [Not Recovered/Not Resolved]
  - Oral candidiasis [Not Recovered/Not Resolved]
  - Off label use [Unknown]

NARRATIVE: CASE EVENT DATE: 20230101
